FAERS Safety Report 20603089 (Version 1)
Quarter: 2022Q1

REPORT INFORMATION
  Report Type: Other
  Country: TR (occurrence: None)
  Receive Date: 20220316
  Receipt Date: 20220316
  Transmission Date: 20220423
  Serious: Yes (Hospitalization)
  Sender: FDA-Public Use
  Company Number: TR-ROCHE-3044345

PATIENT
  Age: 63 Year
  Sex: Male
  Weight: 65 kg

DRUGS (4)
  1. GAZYVA [Suspect]
     Active Substance: OBINUTUZUMAB
     Indication: Diffuse large B-cell lymphoma
     Route: 042
     Dates: start: 20220120, end: 20220120
  2. GLOFITAMAB [Suspect]
     Active Substance: GLOFITAMAB
     Indication: Diffuse large B-cell lymphoma
     Dosage: CYCLE 1 DAY 8
     Route: 042
     Dates: start: 20220127
  3. GLOFITAMAB [Suspect]
     Active Substance: GLOFITAMAB
     Dosage: CYCLE 1 DAY 15
     Route: 042
     Dates: start: 20220203
  4. GLOFITAMAB [Suspect]
     Active Substance: GLOFITAMAB
     Dosage: CYCLE 2?FROM THE 2ND CYCLE TILL THE 12TH CYCLE, 1ST DAY: GLOFITAMAB 30 MG (ONCE PER 21 DAYS) IS ADMI
     Route: 042
     Dates: start: 20220210

REACTIONS (1)
  - Disease progression [Not Recovered/Not Resolved]

NARRATIVE: CASE EVENT DATE: 20220203
